FAERS Safety Report 7962697-9 (Version None)
Quarter: 2011Q4

REPORT INFORMATION
  Report Type: 
  Country: None (occurrence: None)
  Receive Date: 20111207
  Receipt Date: 20111130
  Transmission Date: 20120403
  Serious: No
  Sender: FDA-Public Use
  Company Number: US-B.I. PHARMACEUTICALS,INC./RIDGEFIELD-2011-BP-27149BP

PATIENT
  Age: 68 Year
  Sex: Male

DRUGS (6)
  1. ATENOLOL [Concomitant]
     Indication: HYPERTENSION
     Route: 048
  2. LANTUS [Concomitant]
     Indication: DIABETES MELLITUS
     Route: 058
  3. HUMALOG [Concomitant]
     Indication: DIABETES MELLITUS
     Route: 058
  4. LISINOPRIL [Concomitant]
     Indication: HYPERTENSION
     Route: 048
  5. DIGOXIN [Concomitant]
     Indication: ATRIAL FIBRILLATION
     Route: 048
  6. PRADAXA [Suspect]
     Indication: ATRIAL FIBRILLATION
     Dosage: 300 MG
     Route: 048
     Dates: start: 20110301, end: 20111101

REACTIONS (3)
  - DISCOMFORT [None]
  - DYSPEPSIA [None]
  - BACK PAIN [None]
